FAERS Safety Report 16368639 (Version 1)
Quarter: 2019Q2

REPORT INFORMATION
  Report Type: Spontaneous
  Country: US (occurrence: US)
  Receive Date: 20190529
  Receipt Date: 20190529
  Transmission Date: 20190711
  Serious: Yes (Hospitalization)
  Sender: FDA-Public Use
  Company Number: US-ASTRAZENECA-2019SE78017

PATIENT
  Age: 743 Month
  Sex: Male
  Weight: 69.9 kg

DRUGS (1)
  1. IMFINZI [Suspect]
     Active Substance: DURVALUMAB
     Indication: LUNG CARCINOMA CELL TYPE UNSPECIFIED STAGE III
     Route: 042
     Dates: start: 201903, end: 20190425

REACTIONS (3)
  - Liver function test increased [Recovering/Resolving]
  - Fatigue [Not Recovered/Not Resolved]
  - Dyspnoea [Not Recovered/Not Resolved]

NARRATIVE: CASE EVENT DATE: 201903
